FAERS Safety Report 25981101 (Version 1)
Quarter: 2025Q4

REPORT INFORMATION
  Report Type: Spontaneous
  Country: US (occurrence: None)
  Receive Date: 20251030
  Receipt Date: 20251030
  Transmission Date: 20260117
  Serious: No
  Sender: FDA-CTU
  Company Number: None

PATIENT
  Age: 59 Year
  Sex: Female
  Weight: 62.1 kg

DRUGS (1)
  1. XEOMIN [Suspect]
     Active Substance: INCOBOTULINUMTOXINA
     Indication: Torticollis
     Dosage: OTHER FREQUENCY : EVERY 3 MONTHS;?
     Route: 030

REACTIONS (1)
  - Alopecia [None]

NARRATIVE: CASE EVENT DATE: 20251030
